FAERS Safety Report 22274398 (Version 2)
Quarter: 2023Q2

REPORT INFORMATION
  Report Type: Report from Study
  Country: GB (occurrence: GB)
  Receive Date: 20230502
  Receipt Date: 20230518
  Transmission Date: 20230721
  Serious: Yes (Hospitalization, Other)
  Sender: FDA-Public Use
  Company Number: GB-IPSEN Group, Research and Development-2009-1959

PATIENT
  Age: 3 Year
  Sex: Male
  Weight: 10.2 kg

DRUGS (6)
  1. INCRELEX [Suspect]
     Active Substance: MECASERMIN
     Indication: Laron syndrome
     Route: 058
     Dates: start: 20080130, end: 20090810
  2. INCRELEX [Suspect]
     Active Substance: MECASERMIN
     Dates: start: 20081001
  3. INCRELEX [Suspect]
     Active Substance: MECASERMIN
     Dates: start: 20081215
  4. INCRELEX [Suspect]
     Active Substance: MECASERMIN
     Dates: start: 20081215
  5. INCRELEX [Suspect]
     Active Substance: MECASERMIN
     Dates: start: 200907
  6. INCRELEX [Suspect]
     Active Substance: MECASERMIN
     Dates: start: 20080130

REACTIONS (1)
  - Papilloedema [Recovered/Resolved]

NARRATIVE: CASE EVENT DATE: 20090809
